FAERS Safety Report 21134702 (Version 5)
Quarter: 2023Q1

REPORT INFORMATION
  Report Type: Report from Study
  Country: US (occurrence: US)
  Receive Date: 20220727
  Receipt Date: 20230325
  Transmission Date: 20230418
  Serious: No
  Sender: FDA-Public Use
  Company Number: US-NOVARTISTESTPH-NVSC2022US168945

PATIENT
  Age: 50 Year

DRUGS (1)
  1. COSENTYX [Suspect]
     Active Substance: SECUKINUMAB
     Indication: Psoriasis
     Dosage: UNK
     Route: 065

REACTIONS (5)
  - Pain [Unknown]
  - Joint effusion [Unknown]
  - Back pain [Unknown]
  - Joint swelling [Unknown]
  - Psoriasis [Recovering/Resolving]
